FAERS Safety Report 16507502 (Version 1)
Quarter: 2019Q3

REPORT INFORMATION
  Report Type: Spontaneous
  Country: US (occurrence: US)
  Receive Date: 20190701
  Receipt Date: 20190701
  Transmission Date: 20191004
  Serious: Yes (Other)
  Sender: FDA-Public Use
  Company Number: US-ALLERGAN-1926335US

PATIENT
  Sex: Female
  Weight: 111.4 kg

DRUGS (142)
  1. LANTUS [Concomitant]
     Active Substance: INSULIN GLARGINE
     Dosage: 60 UNITS, QPM
     Route: 058
     Dates: start: 20170207
  2. LANTUS [Concomitant]
     Active Substance: INSULIN GLARGINE
     Dosage: 55 UNITS, QPM
     Route: 058
     Dates: start: 20161122
  3. METFORMIN HYDROCHLORIDE. [Concomitant]
     Active Substance: METFORMIN HYDROCHLORIDE
     Dosage: 2 DF, BID
     Route: 048
     Dates: start: 20140528, end: 20160421
  4. NORTRIPTYLINE [Concomitant]
     Active Substance: NORTRIPTYLINE
     Dosage: 1 DF, QHS
     Route: 048
     Dates: start: 20150408, end: 20160630
  5. SPIRONOLACTONE. [Concomitant]
     Active Substance: SPIRONOLACTONE
     Dosage: 2 DF, QD
     Dates: start: 20170324
  6. SPIRONOLACTONE. [Concomitant]
     Active Substance: SPIRONOLACTONE
     Dosage: 1 DF, BID
     Route: 048
     Dates: start: 20170227
  7. VENTOLIN [Concomitant]
     Active Substance: ALBUTEROL SULFATE
     Dosage: 2 PUFFS
  8. ABILIFY [Concomitant]
     Active Substance: ARIPIPRAZOLE
     Dosage: 2 DF, QAM
     Route: 048
     Dates: start: 20160122
  9. BACLOFEN. [Concomitant]
     Active Substance: BACLOFEN
     Indication: MUSCLE SPASMS
     Dosage: 1 DF, TID
     Route: 048
     Dates: start: 20171113, end: 20180529
  10. LATUDA [Concomitant]
     Active Substance: LURASIDONE HYDROCHLORIDE
     Dosage: 80 MG, QD
     Route: 048
     Dates: start: 20140610
  11. AZITHROMYCIN ANHYDROUS. [Concomitant]
     Active Substance: AZITHROMYCIN ANHYDROUS
     Dosage: 2 DF
     Route: 048
     Dates: start: 20140228
  12. BUSPIRONE [Concomitant]
     Active Substance: BUSPIRONE HYDROCHLORIDE
     Dosage: 1 DF, BID
     Route: 048
     Dates: start: 20140918, end: 20141023
  13. ALPRAZOLAM. [Concomitant]
     Active Substance: ALPRAZOLAM
     Dosage: 1 DF, Q8HR
     Dates: start: 20140918, end: 20141023
  14. VENTOLIN HFA [Concomitant]
     Active Substance: ALBUTEROL SULFATE
     Indication: COUGH
     Dosage: ONE-TWO PUFFS EVERY 4 HOURS AS NEEDED
     Route: 055
     Dates: start: 20171004
  15. VENTOLIN HFA [Concomitant]
     Active Substance: ALBUTEROL SULFATE
     Indication: WHEEZING
     Dosage: 2 PUFFS
     Dates: start: 20141201
  16. INSULIN GLARGINE [Concomitant]
     Active Substance: INSULIN GLARGINE
     Dosage: 100 UNITS, QD
     Dates: start: 20170823
  17. INSULIN GLARGINE [Concomitant]
     Active Substance: INSULIN GLARGINE
     Dosage: 95 UNITS, QAM
     Route: 058
     Dates: start: 20170705, end: 20170831
  18. INSULIN GLARGINE [Concomitant]
     Active Substance: INSULIN GLARGINE
     Dosage: 75 UNITS, QAM
     Route: 058
     Dates: start: 20160226
  19. BREXPIPRAZOLE [Concomitant]
     Active Substance: BREXPIPRAZOLE
     Dosage: 1 DF, QD
     Route: 048
     Dates: start: 20170118, end: 20170227
  20. GLUCOSE [Concomitant]
     Active Substance: DEXTROSE
     Indication: TYPE 2 DIABETES MELLITUS
     Dosage: 4 G
     Route: 048
     Dates: start: 20170130
  21. CARIPRAZINE [Concomitant]
     Active Substance: CARIPRAZINE
     Dosage: 6 MG, QD
     Route: 048
     Dates: start: 20170511, end: 20190315
  22. LISINOPRIL. [Concomitant]
     Active Substance: LISINOPRIL
     Dosage: 1 DF, QD
     Route: 048
     Dates: start: 20180411
  23. VITAMIN D [Concomitant]
     Active Substance: VITAMIN D NOS
     Dosage: 1 DF, QD
     Route: 048
     Dates: start: 20160419
  24. FUROSEMIDE. [Concomitant]
     Active Substance: FUROSEMIDE
     Dosage: 20 MG, QD
     Route: 048
     Dates: start: 20160419
  25. TOPAMAX [Concomitant]
     Active Substance: TOPIRAMATE
     Dosage: 1 DF, BID
     Dates: start: 20170227
  26. GABAPENTIN. [Concomitant]
     Active Substance: GABAPENTIN
     Dosage: 1 DF, TID
     Route: 048
     Dates: start: 20170515
  27. GABAPENTIN. [Concomitant]
     Active Substance: GABAPENTIN
     Dosage: 1 DF, TID
     Route: 048
     Dates: start: 20160421
  28. LAMICTAL [Concomitant]
     Active Substance: LAMOTRIGINE
     Dosage: 4 DF, QD
     Dates: start: 20131204, end: 20190315
  29. LATUDA [Concomitant]
     Active Substance: LURASIDONE HYDROCHLORIDE
     Dosage: 120 MG, QD
     Route: 048
     Dates: start: 20140801, end: 20141023
  30. AZITHROMYCIN ANHYDROUS. [Concomitant]
     Active Substance: AZITHROMYCIN ANHYDROUS
     Dosage: 1 DF, QD FOR 4 DAYS
     Route: 048
     Dates: start: 20140301, end: 20140306
  31. GLUCAGON. [Concomitant]
     Active Substance: GLUCAGON
     Indication: TYPE 2 DIABETES MELLITUS
     Dosage: 1 MG
     Dates: start: 20170130
  32. CARIPRAZINE [Concomitant]
     Active Substance: CARIPRAZINE
     Dosage: 1.5 MG, QD
     Route: 048
     Dates: start: 20170227
  33. NICOTINE. [Concomitant]
     Active Substance: NICOTINE
     Dosage: 1 DF, QD
     Route: 062
     Dates: start: 20170411, end: 20180129
  34. KEFLEX [Concomitant]
     Active Substance: CEPHALEXIN
     Dosage: 1 DF, TID
     Route: 048
     Dates: start: 20171222, end: 20171229
  35. SULFAMETHOXAZOLE [Concomitant]
     Active Substance: SULFAMETHOXAZOLE
     Indication: SKIN INFECTION
     Dosage: 1 DF, BID
     Dates: start: 20180124, end: 20180131
  36. LYRICA [Concomitant]
     Active Substance: PREGABALIN
     Dosage: 1 DF, BID
     Route: 048
     Dates: start: 20181107
  37. NORCO [Suspect]
     Active Substance: ACETAMINOPHEN\HYDROCODONE BITARTRATE
     Indication: PAIN
     Dosage: 1 DF, PRN
     Route: 048
     Dates: start: 20180201, end: 20180203
  38. NORCO [Suspect]
     Active Substance: ACETAMINOPHEN\HYDROCODONE BITARTRATE
     Dosage: 1 DF, BID
     Route: 048
     Dates: start: 20140509, end: 20150526
  39. LANTUS [Concomitant]
     Active Substance: INSULIN GLARGINE
     Indication: DIABETES MELLITUS
     Dosage: 75 UNITS, QPM
     Route: 058
     Dates: start: 20170320
  40. LANTUS [Concomitant]
     Active Substance: INSULIN GLARGINE
     Dosage: 34 UNITS, QPM
     Route: 058
     Dates: start: 20160413
  41. GLIPIZIDE. [Concomitant]
     Active Substance: GLIPIZIDE
     Dosage: 1 DF, QD
     Route: 048
     Dates: start: 20150629
  42. SPIRONOLACTONE. [Concomitant]
     Active Substance: SPIRONOLACTONE
     Dosage: 1 TAB BY MOUTH EVERY MORNING FOR 2 WEEKS THEN 1 TAB TWICE DAILY
     Dates: start: 20150305
  43. SPIRONOLACTONE. [Concomitant]
     Active Substance: SPIRONOLACTONE
     Dosage: 1 DF, QAM
     Route: 048
  44. TOPAMAX [Concomitant]
     Active Substance: TOPIRAMATE
     Dosage: 2 DF, BID
     Route: 048
     Dates: start: 20160122
  45. GABAPENTIN. [Concomitant]
     Active Substance: GABAPENTIN
     Dosage: 2 DF, TID
     Route: 048
     Dates: start: 20170822
  46. GABAPENTIN. [Concomitant]
     Active Substance: GABAPENTIN
     Dosage: 1-2 DF TID
     Route: 048
     Dates: start: 20170804
  47. LORAZEPAM. [Concomitant]
     Active Substance: LORAZEPAM
     Dosage: 1 DF, BID
     Route: 048
  48. LORAZEPAM. [Concomitant]
     Active Substance: LORAZEPAM
     Dosage: 1 DF, QD
     Route: 048
     Dates: end: 20181116
  49. TRAMADOL. [Concomitant]
     Active Substance: TRAMADOL
     Indication: PAIN
     Dosage: 1 DF, TID
     Route: 048
     Dates: start: 20140211
  50. CHANTIX [Concomitant]
     Active Substance: VARENICLINE TARTRATE
     Dosage: AS DIRECTED ON PACKAGE
     Dates: start: 20140204, end: 20140528
  51. AZITHROMYCIN ANHYDROUS. [Concomitant]
     Active Substance: AZITHROMYCIN ANHYDROUS
     Dosage: 2 TABLETS TODAY THEN 1 QD FOR 4 DAYS
     Route: 048
     Dates: start: 20141023, end: 20141119
  52. NICODERM CQ [Concomitant]
     Active Substance: NICOTINE
     Dosage: 1 DF, QD
     Route: 062
     Dates: start: 20140821, end: 20150305
  53. PSEUDOEPHEDRINE HYDROCHLORIDE. [Concomitant]
     Active Substance: PSEUDOEPHEDRINE HYDROCHLORIDE
     Indication: NASAL CONGESTION
     Dosage: 1 DF EVERY 4-6 HOURS AS NEEDED
     Route: 048
     Dates: start: 20141119, end: 20141219
  54. METRONIDAZOLE. [Concomitant]
     Active Substance: METRONIDAZOLE
     Dosage: 1 DF, BID
     Route: 048
     Dates: start: 20160122, end: 20160419
  55. BREXPIPRAZOLE [Concomitant]
     Active Substance: BREXPIPRAZOLE
     Dosage: 1 DF, QPM
     Route: 048
     Dates: start: 20160929
  56. DOXYCYCLINE MONOHYDRATE [Concomitant]
     Active Substance: DOXYCYCLINE
     Dosage: 1 DF, BID
     Route: 048
     Dates: start: 20171103, end: 20171113
  57. NORCO [Suspect]
     Active Substance: ACETAMINOPHEN\HYDROCODONE BITARTRATE
     Dosage: 1 DF, Q6HR
     Route: 048
     Dates: start: 20170530, end: 20170614
  58. GABAPENTIN. [Concomitant]
     Active Substance: GABAPENTIN
     Indication: NEURALGIA
     Dosage: 2 DF BID X 1 WEEK, 1 DF BID X 1 WEEK, 1 DF QD X 1 WEEK
     Dates: start: 20180221, end: 20180321
  59. GABAPENTIN. [Concomitant]
     Active Substance: GABAPENTIN
     Dosage: 2 DF, TID
     Route: 048
     Dates: start: 20171230, end: 20180216
  60. LORAZEPAM. [Concomitant]
     Active Substance: LORAZEPAM
     Dosage: 1-4 TABS UP TO 3 TIMES A DAY AS NEEDED
     Dates: start: 20140801
  61. LATUDA [Concomitant]
     Active Substance: LURASIDONE HYDROCHLORIDE
     Dosage: UNK, QD
     Dates: start: 20140129
  62. AZITHROMYCIN ANHYDROUS. [Concomitant]
     Active Substance: AZITHROMYCIN ANHYDROUS
     Dosage: 2 DF X1, THEN 1 DF QD ON DAYS 2-5
     Route: 048
     Dates: start: 20141120, end: 20141127
  63. ZYPREXA [Concomitant]
     Active Substance: OLANZAPINE
     Indication: ANXIETY
     Dosage: ONE TABLET 1-2 TIMES DAILY AS NEEDED
     Dates: start: 20140708, end: 20140801
  64. INSULIN GLARGINE [Concomitant]
     Active Substance: INSULIN GLARGINE
     Dosage: 90 UNITS, QD
     Dates: start: 20180503
  65. INSULIN GLARGINE [Concomitant]
     Active Substance: INSULIN GLARGINE
     Dosage: 80 UNITS, QAM
     Route: 058
     Dates: start: 20170427
  66. PYRIDIUM [Concomitant]
     Active Substance: PHENAZOPYRIDINE
     Dosage: 1 DF, TID
     Dates: start: 20160304, end: 20160306
  67. BREXPIPRAZOLE [Concomitant]
     Active Substance: BREXPIPRAZOLE
     Dosage: 3 DF, QPM
     Route: 048
     Dates: start: 20161228
  68. BYDUREON [Concomitant]
     Active Substance: EXENATIDE
     Dosage: 2 MG, Q WEEK
     Route: 058
     Dates: start: 20160226, end: 20170705
  69. BYDUREON [Concomitant]
     Active Substance: EXENATIDE
     Dosage: 2 MG, Q WEEK
     Route: 058
     Dates: start: 20170621
  70. MEDROL [Concomitant]
     Active Substance: METHYLPREDNISOLONE
     Dosage: 6 DF 1ST DAY, 5 DF 2ND DAY, 4 DF 3RD DAY, 3 DF 4TH DAY, 2 DF 5TH DAY, 1 DF LAST DAY
     Dates: start: 20170530, end: 20170605
  71. ONDANSETRON [Concomitant]
     Active Substance: ONDANSETRON
     Indication: NAUSEA
     Dosage: 1 DF, Q4HR
     Route: 048
     Dates: start: 20180124, end: 20181107
  72. NORCO [Suspect]
     Active Substance: ACETAMINOPHEN\HYDROCODONE BITARTRATE
     Dosage: 1 DF, Q8HR
     Route: 048
     Dates: start: 20170622, end: 20171127
  73. NORCO [Suspect]
     Active Substance: ACETAMINOPHEN\HYDROCODONE BITARTRATE
     Dosage: 1 DF, Q6HR
     Route: 048
     Dates: start: 20160419
  74. LANTUS [Concomitant]
     Active Substance: INSULIN GLARGINE
     Dosage: 70 UNITS, QPM
     Route: 058
     Dates: start: 20170314
  75. METFORMIN HYDROCHLORIDE. [Concomitant]
     Active Substance: METFORMIN HYDROCHLORIDE
     Dosage: 1 DF, BID
     Route: 048
     Dates: start: 20160420
  76. METFORMIN HYDROCHLORIDE. [Concomitant]
     Active Substance: METFORMIN HYDROCHLORIDE
     Dosage: 1 DF, BID
     Route: 048
     Dates: start: 20140103
  77. COLACE [Concomitant]
     Active Substance: DOCUSATE SODIUM
     Dosage: 1 DF, BID
     Route: 048
     Dates: start: 20150623, end: 20170118
  78. AZITHROMYCIN ANHYDROUS. [Concomitant]
     Active Substance: AZITHROMYCIN ANHYDROUS
     Dosage: 1 DF, QD
     Route: 048
     Dates: start: 20171002, end: 20171103
  79. PROPRANOLOL HCL [Concomitant]
     Active Substance: PROPRANOLOL HYDROCHLORIDE
     Dosage: 1/2 TO 1 TABLET THREE TIMES DAILY
     Route: 048
     Dates: start: 20141201, end: 20150305
  80. FLOVENT HFA [Concomitant]
     Active Substance: FLUTICASONE PROPIONATE
     Dosage: 2 INHALES TWICE DAILY
     Route: 055
     Dates: start: 20141201, end: 20150305
  81. VENLAFAXINE HCL [Concomitant]
     Active Substance: VENLAFAXINE HYDROCHLORIDE
     Dosage: 3 DF, QD
     Route: 048
     Dates: start: 20150707, end: 20160419
  82. INSULIN GLARGINE [Concomitant]
     Active Substance: INSULIN GLARGINE
     Dosage: 95 UNITS, QD
     Dates: start: 20170814
  83. INSULIN GLARGINE [Concomitant]
     Active Substance: INSULIN GLARGINE
     Dosage: 90 UNITS, QAM
     Route: 058
     Dates: start: 20170522
  84. CIPROFLOXACIN HCL [Concomitant]
     Active Substance: CIPROFLOXACIN HYDROCHLORIDE
     Dosage: 1 DF, BID
     Route: 048
     Dates: start: 20160304, end: 20160307
  85. OXYCODONE HYDROCHLORIDE. [Concomitant]
     Active Substance: OXYCODONE HYDROCHLORIDE
     Indication: PAIN
     Dosage: 1/2-1 TABLET EVERY 8 HRS AS NEEDED
     Route: 048
     Dates: start: 20170106, end: 20170118
  86. LYRICA [Concomitant]
     Active Substance: PREGABALIN
     Dosage: 1 DF, QAM
     Route: 048
     Dates: start: 20180618
  87. LYRICA [Concomitant]
     Active Substance: PREGABALIN
     Dosage: 1 DF, BID
     Route: 048
     Dates: start: 20180221
  88. NORCO [Suspect]
     Active Substance: ACETAMINOPHEN\HYDROCODONE BITARTRATE
     Dosage: 1 DF EVERY 4-6 HOURS AS NEEDED
     Dates: start: 20160630, end: 20160706
  89. LANTUS [Concomitant]
     Active Substance: INSULIN GLARGINE
     Dosage: 65 UNITS, QPM
     Route: 058
     Dates: start: 20170220
  90. LANTUS [Concomitant]
     Active Substance: INSULIN GLARGINE
     Dosage: 36 UNITS, QPM
     Route: 058
     Dates: start: 20160419
  91. LANTUS [Concomitant]
     Active Substance: INSULIN GLARGINE
     Dosage: 26 UNITS, QPM
     Route: 058
     Dates: start: 20160316
  92. LANTUS [Concomitant]
     Active Substance: INSULIN GLARGINE
     Dosage: 10 UNITS, QPM
     Route: 058
     Dates: start: 20160226
  93. GLIPIZIDE. [Concomitant]
     Active Substance: GLIPIZIDE
     Indication: DIABETES MELLITUS
     Dosage: 1 TAB BY MOUTH IN THE AM AND 2 TABS WITH DINNER
     Route: 048
     Dates: start: 20160223
  94. GLIPIZIDE. [Concomitant]
     Active Substance: GLIPIZIDE
     Dosage: 1 DF, BID
     Route: 048
     Dates: start: 20150707
  95. VITAMIN D [Concomitant]
     Active Substance: VITAMIN D NOS
     Indication: PRODUCT USED FOR UNKNOWN INDICATION
     Dosage: 1 DF, QD
     Route: 048
     Dates: start: 20170918, end: 20171226
  96. VITAMIN B12 [Concomitant]
     Active Substance: CYANOCOBALAMIN
     Indication: PRODUCT USED FOR UNKNOWN INDICATION
     Dosage: 1 DF, QD
     Route: 048
     Dates: start: 20170419
  97. ABILIFY [Concomitant]
     Active Substance: ARIPIPRAZOLE
     Dosage: 1 DF, QD
     Route: 048
     Dates: start: 20160226, end: 20170411
  98. ABILIFY [Concomitant]
     Active Substance: ARIPIPRAZOLE
     Dosage: 1 1/2 TABLETS EVERY MORNING
     Route: 048
     Dates: start: 20141023
  99. TOPAMAX [Concomitant]
     Active Substance: TOPIRAMATE
     Dosage: 1 DF, BID
     Dates: start: 20150129
  100. GABAPENTIN. [Concomitant]
     Active Substance: GABAPENTIN
     Dosage: 3 DF, TID
     Route: 048
     Dates: start: 20170515
  101. GABAPENTIN. [Concomitant]
     Active Substance: GABAPENTIN
     Dosage: 2 DF, TID
     Route: 048
     Dates: start: 20140828, end: 20160421
  102. BACLOFEN. [Concomitant]
     Active Substance: BACLOFEN
     Indication: HEADACHE
     Dosage: 1 DF, TID
     Route: 048
     Dates: start: 20170901, end: 20171226
  103. NABUMETONE. [Concomitant]
     Active Substance: NABUMETONE
     Dosage: 2 DF, QAM
     Route: 048
     Dates: start: 20131004, end: 20140129
  104. TRAMADOL. [Concomitant]
     Active Substance: TRAMADOL
     Dosage: 1-2 TABS EVERY 8 HOURS AS NEEDED
     Dates: start: 20140306, end: 20140509
  105. CHANTIX [Concomitant]
     Active Substance: VARENICLINE TARTRATE
     Dosage: AS DIRECTED ON PACKAGE
     Dates: start: 20140303, end: 20140528
  106. INSULIN GLARGINE [Concomitant]
     Active Substance: INSULIN GLARGINE
     Dosage: 85 UNITS, QAM
     Route: 058
     Dates: start: 20170515
  107. HYDROXYZINE [Concomitant]
     Active Substance: HYDROXYZINE HYDROCHLORIDE
     Dosage: 1 DF, TID
     Route: 048
     Dates: start: 20170511
  108. NORCO [Suspect]
     Active Substance: ACETAMINOPHEN\HYDROCODONE BITARTRATE
     Dosage: 1-2 TABLETS EVERY 6 HOURS AS NEEDED
     Route: 048
     Dates: start: 20140110
  109. LANTUS [Concomitant]
     Active Substance: INSULIN GLARGINE
     Dosage: 45 UNITS, QPM
     Route: 058
     Dates: start: 20160711
  110. METFORMIN HYDROCHLORIDE. [Concomitant]
     Active Substance: METFORMIN HYDROCHLORIDE
     Indication: DIABETES MELLITUS
     Dosage: 1 DF, BID
     Route: 048
     Dates: start: 20170623
  111. VITAMIN D [Concomitant]
     Active Substance: VITAMIN D NOS
     Dosage: 1 DF, QD
     Route: 048
     Dates: start: 20170424
  112. VITAMIN B12 [Concomitant]
     Active Substance: CYANOCOBALAMIN
     Dosage: 1 DF, QD
     Route: 048
     Dates: start: 20160419, end: 20180529
  113. FUROSEMIDE. [Concomitant]
     Active Substance: FUROSEMIDE
     Indication: OEDEMA
     Dosage: 40 MG, QD
     Route: 048
     Dates: start: 20160505
  114. INSULIN [Concomitant]
     Active Substance: INSULIN NOS
     Indication: TYPE 2 DIABETES MELLITUS
     Dosage: UNK
  115. OMEPRAZOLE. [Concomitant]
     Active Substance: OMEPRAZOLE
     Dosage: 1 DF, QD
     Route: 048
     Dates: start: 20160122
  116. GABAPENTIN. [Concomitant]
     Active Substance: GABAPENTIN
     Dosage: 1 CAPSULE IN AM, 1 CAPSULE IN AFTERNOON, AND 2 CAPSULES IN PM
     Route: 048
     Dates: start: 20140822
  117. BACLOFEN. [Concomitant]
     Active Substance: BACLOFEN
     Dosage: 1 DF, TID
     Route: 048
     Dates: start: 20171113, end: 20171226
  118. LATUDA [Concomitant]
     Active Substance: LURASIDONE HYDROCHLORIDE
     Dosage: 40 MG, QAM
     Route: 048
     Dates: start: 20140523
  119. PREDNISONE. [Concomitant]
     Active Substance: PREDNISONE
     Dosage: 2 DF THIS EVENING WITH DINNER
     Dates: start: 20170227, end: 20170411
  120. PREDNISONE. [Concomitant]
     Active Substance: PREDNISONE
     Dosage: 3 DF QD FOR 3 DAYS/2 DF QD FOR 3 DAYS/1 DF QD FOR 3 DAYS
     Route: 048
     Dates: start: 20140728, end: 20140806
  121. ZOLOFT [Concomitant]
     Active Substance: SERTRALINE HYDROCHLORIDE
     Dosage: 1 DF, QD
     Route: 048
     Dates: start: 20140801, end: 20141023
  122. FLUTICASONE PROPIONATE. [Concomitant]
     Active Substance: FLUTICASONE PROPIONATE
     Indication: SINUSITIS
     Dosage: 1-2 SPRAYS IN EACH NOSTRIL ONCE DAILY
     Route: 045
     Dates: start: 20141119, end: 20141219
  123. METRONIDAZOLE. [Concomitant]
     Active Substance: METRONIDAZOLE
     Dosage: 1 DF, BID
     Route: 048
     Dates: start: 20170118, end: 20170125
  124. INSULIN GLARGINE [Concomitant]
     Active Substance: INSULIN GLARGINE
     Dosage: 110 UNITS, QD
     Dates: start: 20171204
  125. ATORVASTATIN CALCIUM. [Concomitant]
     Active Substance: ATORVASTATIN CALCIUM
     Dosage: 1 DF, QD
     Route: 048
     Dates: start: 20161228
  126. CYMBALTA [Concomitant]
     Active Substance: DULOXETINE HYDROCHLORIDE
     Indication: PAIN
     Dosage: 3 DF, QD
     Route: 048
     Dates: start: 20180129, end: 20190315
  127. LANTUS [Concomitant]
     Active Substance: INSULIN GLARGINE
     Dosage: 40 UNITS, QPM
     Route: 058
     Dates: start: 20160620
  128. VITAMIN D [Concomitant]
     Active Substance: VITAMIN D NOS
     Dosage: 1 DF, QD
     Route: 048
     Dates: start: 20170918
  129. CLARITIN [Concomitant]
     Active Substance: LORATADINE
     Indication: PRODUCT USED FOR UNKNOWN INDICATION
     Dosage: 10 MG, QD
     Route: 048
     Dates: start: 20160419, end: 20180810
  130. FUROSEMIDE. [Concomitant]
     Active Substance: FUROSEMIDE
     Indication: SWELLING
     Dosage: 40 MG, QD
     Route: 048
     Dates: start: 20180424, end: 20180727
  131. TOPAMAX [Concomitant]
     Active Substance: TOPIRAMATE
     Dosage: 2 DF, BID
     Route: 048
     Dates: start: 20140801, end: 20150129
  132. GABAPENTIN. [Concomitant]
     Active Substance: GABAPENTIN
     Dosage: 1 DF QAM, 1 DF QPM, 2 DF AT NIGHT FOR 1 WEEK/ 2 DF QAM, 1 DF QPM, 2 DF AT NIGHT
     Route: 048
     Dates: start: 20170818
  133. GABAPENTIN. [Concomitant]
     Active Substance: GABAPENTIN
     Dosage: 1 DF, TID
     Route: 048
     Dates: start: 20140509
  134. FLURBIPROFEN. [Concomitant]
     Active Substance: FLURBIPROFEN
     Dosage: 1 DF, TID
     Route: 048
     Dates: start: 20140103
  135. FLURBIPROFEN. [Concomitant]
     Active Substance: FLURBIPROFEN
     Dosage: 1 TABLET TID AS NEEDED
     Route: 048
     Dates: start: 20190312, end: 20190318
  136. BACLOFEN. [Concomitant]
     Active Substance: BACLOFEN
     Dosage: 1 DF, TID
     Route: 048
     Dates: start: 20170414
  137. CHANTIX [Concomitant]
     Active Substance: VARENICLINE TARTRATE
     Indication: SMOKING CESSATION THERAPY
     Dosage: AS DIRECTED ON PACKAGE
     Dates: start: 20140708, end: 20140821
  138. METRONIDAZOLE. [Concomitant]
     Active Substance: METRONIDAZOLE
     Dosage: 1 DF, BID
     Route: 048
     Dates: start: 20150312, end: 20150924
  139. TRILEPTAL [Concomitant]
     Active Substance: OXCARBAZEPINE
     Dosage: 1 DF, BID
     Route: 048
     Dates: start: 20160620, end: 20160912
  140. CARIPRAZINE [Concomitant]
     Active Substance: CARIPRAZINE
     Dosage: 4.5 MG, QD
     Route: 048
     Dates: start: 20170411
  141. CYMBALTA [Concomitant]
     Active Substance: DULOXETINE HYDROCHLORIDE
     Indication: DEPRESSION
     Dosage: 1 DF, QD
     Route: 048
     Dates: start: 20170911
  142. PROMETHAZINE [Concomitant]
     Active Substance: PROMETHAZINE HYDROCHLORIDE
     Indication: NAUSEA
     Dosage: 1-2 TABLETS Q6HRS
     Route: 048
     Dates: start: 20180109, end: 20180124

REACTIONS (8)
  - Abscess limb [Unknown]
  - Drug hypersensitivity [Unknown]
  - Eructation [Unknown]
  - Micturition urgency [Unknown]
  - Pollakiuria [Unknown]
  - Oedema [Unknown]
  - Mood swings [Unknown]
  - Dyspnoea [Unknown]

NARRATIVE: CASE EVENT DATE: 20160419
